FAERS Safety Report 21108656 (Version 4)
Quarter: 2022Q3

REPORT INFORMATION
  Report Type: Report from Study
  Country: US (occurrence: US)
  Receive Date: 20220721
  Receipt Date: 20220902
  Transmission Date: 20221027
  Serious: Yes (Hospitalization, Other)
  Sender: FDA-Public Use
  Company Number: US-ABBVIE-22K-163-4474927-00

PATIENT
  Sex: Male

DRUGS (4)
  1. IMBRUVICA [Suspect]
     Active Substance: IBRUTINIB
     Indication: Chronic lymphocytic leukaemia
     Route: 048
     Dates: start: 202102
  2. CEFEPIME [Suspect]
     Active Substance: CEFEPIME HYDROCHLORIDE
     Indication: Antibiotic prophylaxis
     Route: 065
  3. MODERNA COVID-19 VACCINE [Concomitant]
     Active Substance: ELASOMERAN
     Indication: COVID-19 immunisation
     Route: 030
     Dates: start: 2021, end: 2021
  4. MODERNA COVID-19 VACCINE [Concomitant]
     Active Substance: ELASOMERAN
     Route: 030
     Dates: start: 2021, end: 2021

REACTIONS (13)
  - Drug hypersensitivity [Recovered/Resolved]
  - Fungal foot infection [Recovered/Resolved]
  - Paronychia [Recovering/Resolving]
  - Nail infection [Recovering/Resolving]
  - Inflammation [Recovering/Resolving]
  - Swollen tongue [Recovered/Resolved]
  - Sneezing [Recovered/Resolved]
  - Dysphonia [Recovered/Resolved]
  - Lip swelling [Recovered/Resolved]
  - Lacrimation increased [Recovered/Resolved]
  - Pain in extremity [Recovered/Resolved]
  - Cellulitis [Recovered/Resolved]
  - Rash [Recovered/Resolved]

NARRATIVE: CASE EVENT DATE: 20220101
